FAERS Safety Report 4863053-2 (Version None)
Quarter: 2005Q4

REPORT INFORMATION
  Report Type: 
  Country: None (occurrence: None)
  Receive Date: 20051221
  Receipt Date: 20051005
  Transmission Date: 20060501
  Serious: Yes (Hospitalization)
  Sender: FDA-Public Use
  Company Number: US-MERCK-0510USA05322

PATIENT
  Age: 80 Year
  Sex: Female
  Weight: 60 kg

DRUGS (3)
  1. VIOXX [Suspect]
     Indication: BACK PAIN
     Route: 048
     Dates: start: 20010801
  2. SOMA [Concomitant]
     Route: 065
  3. VITAMINS (UNSPECIFIED) [Concomitant]
     Route: 065

REACTIONS (6)
  - COLITIS ULCERATIVE [None]
  - CROHN'S DISEASE [None]
  - DIVERTICULAR PERFORATION [None]
  - GASTRIC ULCER [None]
  - OESOPHAGITIS ULCERATIVE [None]
  - THROMBOSIS [None]
